FAERS Safety Report 7011277-0 (Version None)
Quarter: 2010Q3

REPORT INFORMATION
  Report Type: 
  Country: None (occurrence: None)
  Receive Date: 20100922
  Receipt Date: 20100922
  Transmission Date: 20110219
  Serious: Yes (Other)
  Sender: FDA-Public Use
  Company Number: None

PATIENT
  Age: 28 Year
  Sex: Male
  Weight: 68.9467 kg

DRUGS (1)
  1. DORYX [Suspect]
     Indication: ACNE
     Dosage: 1 PILL A DAY
     Dates: start: 20100805, end: 20100919

REACTIONS (4)
  - GINGIVAL SWELLING [None]
  - OROPHARYNGEAL BLISTERING [None]
  - OROPHARYNGEAL PAIN [None]
  - SWELLING FACE [None]
